FAERS Safety Report 14881495 (Version 7)
Quarter: 2021Q4

REPORT INFORMATION
  Report Type: Spontaneous
  Country: US (occurrence: US)
  Receive Date: 20180511
  Receipt Date: 20211216
  Transmission Date: 20220303
  Serious: Yes (Hospitalization, Other)
  Sender: FDA-Public Use
  Company Number: US-PFIZER INC-2018190663

PATIENT
  Age: 63 Year
  Sex: Male
  Weight: 109 kg

DRUGS (1)
  1. XALKORI [Suspect]
     Active Substance: CRIZOTINIB
     Indication: Lung neoplasm malignant
     Dosage: 250 MG, 1X/DAY
     Route: 048
     Dates: start: 201702

REACTIONS (2)
  - Intervertebral disc degeneration [Recovered/Resolved]
  - Laryngitis [Unknown]
